FAERS Safety Report 18472709 (Version 4)
Quarter: 2020Q4

REPORT INFORMATION
  Report Type: Spontaneous
  Country: CA (occurrence: CA)
  Receive Date: 20201106
  Receipt Date: 20201112
  Transmission Date: 20210114
  Serious: Yes (Life-Threatening, Hospitalization, Other)
  Sender: FDA-Public Use
  Company Number: CA-PFIZER INC-2020429198

PATIENT
  Age: 58 Year
  Sex: Female

DRUGS (1)
  1. RAMIPRIL. [Suspect]
     Active Substance: RAMIPRIL
     Indication: HYPERTENSION
     Dosage: UNK

REACTIONS (5)
  - Epiglottic oedema [Unknown]
  - Angioedema [Unknown]
  - Vocal cord dysfunction [Unknown]
  - Stridor [Unknown]
  - Cough [Unknown]
